FAERS Safety Report 6458579-4 (Version None)
Quarter: 2009Q4

REPORT INFORMATION
  Report Type: 
  Country: None (occurrence: None)
  Receive Date: 20091126
  Receipt Date: 20091116
  Transmission Date: 20100525
  Serious: Yes (Hospitalization, Disabling, Other)
  Sender: FDA-Public Use
  Company Number: JP-BRISTOL-MYERS SQUIBB COMPANY-14792162

PATIENT
  Age: 43 Year
  Sex: Male

DRUGS (9)
  1. STOCRIN CAPS [Suspect]
     Indication: HIV INFECTION
     Dosage: D/C ON 25SEP08.
     Route: 048
     Dates: start: 20071013, end: 20080925
  2. ISENTRESS [Suspect]
     Indication: HIV INFECTION
     Dosage: 13OCT07-08OCT08:362D,26SEP07-08OCT08:379D,13OCT07-10NOV(29D)+08OCT08(362D),07MAY-25SEP08:142D TABS
     Route: 048
     Dates: start: 20071013, end: 20081008
  3. NORVIR [Suspect]
     Indication: HIV INFECTION
     Dosage: FORM : TABS
     Route: 048
     Dates: start: 20071013, end: 20081008
  4. TRUVADA [Suspect]
     Indication: HIV INFECTION
     Dosage: 1 DF = 1 TABS TABS
     Route: 048
     Dates: start: 20070926, end: 20081008
  5. PREZISTA [Suspect]
     Indication: HIV INFECTION
     Dosage: TABS
     Route: 048
     Dates: start: 20071013, end: 20081008
  6. T-20 [Suspect]
     Indication: HIV INFECTION
     Dosage: 13OCT07-10NOV07:29D 07MAY08-25SEP08:142D FORM:INJ
     Route: 058
     Dates: start: 20071013, end: 20080925
  7. LENDORMIN [Concomitant]
     Dates: start: 20080807, end: 20080828
  8. RISPERDAL [Concomitant]
     Dates: start: 20080807, end: 20080925
  9. DEPAKENE [Concomitant]
     Dates: start: 20080528, end: 20090129

REACTIONS (2)
  - AIDS ENCEPHALOPATHY [None]
  - SUBDURAL HAEMATOMA [None]
